FAERS Safety Report 20565063 (Version 1)
Quarter: 2022Q1

REPORT INFORMATION
  Report Type: Report from Study
  Country: US (occurrence: None)
  Receive Date: 20220308
  Receipt Date: 20220308
  Transmission Date: 20220424
  Serious: No
  Sender: FDA-Public Use
  Company Number: US-Spark Therapeutics, Inc.-US-SPK-20-00065

PATIENT
  Age: 15 Year
  Sex: Male
  Weight: 63.7 kg

DRUGS (21)
  1. LUXTURNA [Suspect]
     Active Substance: VORETIGENE NEPARVOVEC-RZYL
     Indication: Leber^s congenital amaurosis
     Dosage: SUBRETINAL LEFT EYE
     Dates: start: 20181113, end: 20181113
  2. LUXTURNA [Suspect]
     Active Substance: VORETIGENE NEPARVOVEC-RZYL
     Dosage: SUBRETINAL RIGHT EYE
     Dates: start: 20181120, end: 20181120
  3. LUXTURNA [Suspect]
     Active Substance: VORETIGENE NEPARVOVEC-RZYL
     Indication: Leber^s congenital amaurosis
     Dosage: LEFT EYE
     Dates: start: 20181113, end: 20181113
  4. LUXTURNA [Suspect]
     Active Substance: VORETIGENE NEPARVOVEC-RZYL
     Dosage: RIGHT EYE
     Dates: start: 20181120, end: 20181120
  5. MAXITROL [Suspect]
     Active Substance: DEXAMETHASONE\NEOMYCIN SULFATE\POLYMYXIN B SULFATE
     Indication: Prophylaxis
     Dosage: OCULAR, LEFT EYE
     Dates: start: 20181114, end: 20181121
  6. MAXITROL [Suspect]
     Active Substance: DEXAMETHASONE\NEOMYCIN SULFATE\POLYMYXIN B SULFATE
     Dosage: OCULAR, LEFT EYE
     Dates: start: 20181121, end: 20181128
  7. MAXITROL [Suspect]
     Active Substance: DEXAMETHASONE\NEOMYCIN SULFATE\POLYMYXIN B SULFATE
     Dosage: OCULAR, LEFT EYE
     Dates: start: 20181128, end: 20181205
  8. MAXITROL [Suspect]
     Active Substance: DEXAMETHASONE\NEOMYCIN SULFATE\POLYMYXIN B SULFATE
     Dosage: OCULAR, LEFT EYE
     Dates: start: 20181205, end: 20181212
  9. MAXITROL [Suspect]
     Active Substance: DEXAMETHASONE\NEOMYCIN SULFATE\POLYMYXIN B SULFATE
     Dosage: OCULAR, RIGHT EYE
     Dates: start: 20181121, end: 20181128
  10. MAXITROL [Suspect]
     Active Substance: DEXAMETHASONE\NEOMYCIN SULFATE\POLYMYXIN B SULFATE
     Dosage: OCULAR, RIGHT EYE
     Dates: start: 20181128, end: 20181205
  11. MAXITROL [Suspect]
     Active Substance: DEXAMETHASONE\NEOMYCIN SULFATE\POLYMYXIN B SULFATE
     Dosage: OCULAR, RIGHT EYE
     Dates: start: 20181205, end: 20181212
  12. MAXITROL [Suspect]
     Active Substance: DEXAMETHASONE\NEOMYCIN SULFATE\POLYMYXIN B SULFATE
     Dosage: OCULAR, RIGHT EYE
     Dates: start: 20181212, end: 20181219
  13. PREDNISONE [Concomitant]
     Active Substance: PREDNISONE
     Indication: Prophylaxis
     Route: 048
     Dates: start: 20181110, end: 20181123
  14. PREDNISONE [Concomitant]
     Active Substance: PREDNISONE
     Route: 048
     Dates: start: 20181124, end: 20181125
  15. PREDNISONE [Concomitant]
     Active Substance: PREDNISONE
     Route: 048
     Dates: start: 20181126, end: 20181127
  16. PREDNISONE [Concomitant]
     Active Substance: PREDNISONE
     Route: 048
     Dates: start: 20181128, end: 20181129
  17. PREDNISONE [Concomitant]
     Active Substance: PREDNISONE
     Route: 048
     Dates: start: 20181130, end: 20181201
  18. PREDNISONE [Concomitant]
     Active Substance: PREDNISONE
     Route: 048
     Dates: start: 20181202, end: 20181203
  19. ATROPINE [Concomitant]
     Active Substance: ATROPINE
     Indication: Prophylaxis
     Dosage: OCULAR, LEFT EYE
     Dates: start: 20181114, end: 20181119
  20. ATROPINE [Concomitant]
     Active Substance: ATROPINE
     Dosage: OCULAR, RIGHT EYE
     Dates: start: 20181121, end: 20181126
  21. ALPHAGAN P [Concomitant]
     Active Substance: BRIMONIDINE TARTRATE
     Indication: Glaucoma

REACTIONS (4)
  - Intraocular pressure increased [Recovered/Resolved]
  - Intraocular pressure increased [Recovered/Resolved]
  - Retinal tear [Recovered/Resolved]
  - Chorioretinal atrophy [Not Recovered/Not Resolved]

NARRATIVE: CASE EVENT DATE: 20181113
